FAERS Safety Report 6982129-7 (Version None)
Quarter: 2010Q3

REPORT INFORMATION
  Report Type: 
  Country: None (occurrence: None)
  Receive Date: 20100914
  Receipt Date: 20091119
  Transmission Date: 20110219
  Serious: Yes (Other)
  Sender: FDA-Public Use
  Company Number: US-PFIZER INC-2009301271

PATIENT
  Sex: Male
  Weight: 86.168 kg

DRUGS (3)
  1. LYRICA [Suspect]
     Indication: CONVULSION
     Dosage: 75 MGS, 2 PILLS IN THE MORNING AND 2 PILLS IN THE EVENING
     Route: 048
     Dates: start: 20070701, end: 20090901
  2. DILANTIN [Concomitant]
     Indication: CONVULSION
     Dosage: FREQUENCY: 3X/DAY,
  3. LAMICTAL [Concomitant]
     Dosage: UNK
     Dates: start: 20090101

REACTIONS (3)
  - CONVULSION [None]
  - SENSITIVITY OF TEETH [None]
  - TOOTHACHE [None]
